FAERS Safety Report 12651484 (Version 1)
Quarter: 2016Q3

REPORT INFORMATION
  Report Type: Spontaneous
  Country: FR (occurrence: FR)
  Receive Date: 20160815
  Receipt Date: 20160815
  Transmission Date: 20161109
  Serious: Yes (Hospitalization)
  Sender: FDA-Public Use
  Company Number: FR-ELI_LILLY_AND_COMPANY-FR201608002045

PATIENT
  Age: 58 Year
  Sex: Female
  Weight: 68 kg

DRUGS (8)
  1. CISPLATINE ACCORD [Suspect]
     Active Substance: CISPLATIN
     Indication: LUNG ADENOCARCINOMA STAGE IV
     Dosage: 131 MG, UNKNOWN
     Route: 042
     Dates: start: 20160519
  2. EMEND [Concomitant]
     Active Substance: APREPITANT
  3. ALIMTA [Suspect]
     Active Substance: PEMETREXED DISODIUM
     Indication: LUNG ADENOCARCINOMA STAGE IV
     Dosage: 875 MG, UNKNOWN
     Route: 042
     Dates: start: 20160519
  4. BICARBONATE [Concomitant]
     Active Substance: BICARBONATE ION
  5. ALDACTAZINE [Concomitant]
     Active Substance: ALTHIAZIDE\SPIRONOLACTONE
     Dosage: 0.5 DF, UNK
  6. OMEPRAZOLE. [Concomitant]
     Active Substance: OMEPRAZOLE
  7. ZOPHREN                            /00955301/ [Concomitant]
     Active Substance: ONDANSETRON
  8. CORTANCYL [Concomitant]
     Active Substance: PREDNISONE

REACTIONS (4)
  - C-reactive protein increased [Unknown]
  - Sepsis syndrome [Unknown]
  - Intestinal perforation [Recovered/Resolved with Sequelae]
  - Diverticulitis [Recovered/Resolved]

NARRATIVE: CASE EVENT DATE: 20160527
